FAERS Safety Report 8470308-1 (Version None)
Quarter: 2012Q2

REPORT INFORMATION
  Report Type: 
  Country: None (occurrence: None)
  Receive Date: 20120627
  Receipt Date: 20120622
  Transmission Date: 20120825
  Serious: Yes (Other)
  Sender: FDA-Public Use
  Company Number: US-PFIZER INC-2010034429

PATIENT
  Sex: Female
  Weight: 66.8 kg

DRUGS (7)
  1. DILANTIN [Suspect]
     Dosage: 3X100 MG, EXTENDED CAPSULES AT BED TIME
     Route: 048
     Dates: start: 20091023, end: 20091028
  2. DILANTIN [Suspect]
     Dosage: 4X100 MG, EXTENDED CAPSULES AT BED TIME
     Route: 048
     Dates: start: 20091029, end: 20091104
  3. DILANTIN [Suspect]
     Dosage: 30MG ONE CAPSULE + 3X100MG EXTENDED CAPSULES
     Route: 048
     Dates: start: 20091105, end: 20091112
  4. CITALOPRAM [Concomitant]
     Dosage: 20 MG, 2 TABLETS DAILY
     Route: 048
  5. LEVETIRACETAM [Concomitant]
     Dosage: 250 MG, 3 TABLETS TWICE DAILY
     Route: 048
  6. LORAZEPAM [Concomitant]
     Dosage: 0.5 MG, 2X/DAY, TABLET
     Route: 048
  7. DILANTIN [Suspect]
     Indication: CONVULSION
     Dosage: 1000 MG, 1X/DAY
     Route: 042
     Dates: start: 20091022, end: 20091022

REACTIONS (1)
  - STEVENS-JOHNSON SYNDROME [None]
